FAERS Safety Report 12188782 (Version 1)
Quarter: 2016Q1

REPORT INFORMATION
  Report Type: Other
  Country: GB (occurrence: GB)
  Receive Date: 20160317
  Receipt Date: 20160317
  Transmission Date: 20160526
  Serious: Yes (Other)
  Sender: FDA-Public Use
  Company Number: GB-DEP_13846_2016

PATIENT
  Age: 35 Year
  Sex: Male

DRUGS (7)
  1. AMITRIPTYLINE (AMITRIPTYLINE) [Suspect]
     Active Substance: AMITRIPTYLINE
     Indication: PRODUCT USED FOR UNKNOWN INDICATION
     Dosage: DF
  2. CANDESARTAN [Concomitant]
     Active Substance: CANDESARTAN
     Indication: MIGRAINE
     Dosage: DF
  3. FENTANYL CITRATE (FENTANYL CITRATE) (FENTANYL CITRATE) [Suspect]
     Active Substance: FENTANYL CITRATE
     Indication: PRODUCT USED FOR UNKNOWN INDICATION
     Dosage: DF
  4. COCODAMOL [Concomitant]
     Active Substance: ACETAMINOPHEN\CODEINE PHOSPHATE
     Dosage: DF
  5. DIAZEPAM. [Concomitant]
     Active Substance: DIAZEPAM
     Dosage: DF
  6. IBUPROFEN. [Concomitant]
     Active Substance: IBUPROFEN
     Dosage: DF
  7. MORPHINE [Concomitant]
     Active Substance: MORPHINE
     Dosage: DF

REACTIONS (4)
  - Pruritus [Not Recovered/Not Resolved]
  - Nightmare [Not Recovered/Not Resolved]
  - Suicidal ideation [Not Recovered/Not Resolved]
  - Insomnia [Not Recovered/Not Resolved]
